FAERS Safety Report 8829884 (Version 3)
Quarter: 2013Q1

REPORT INFORMATION
  Report Type: Spontaneous
  Country: US (occurrence: US)
  Receive Date: 20121008
  Receipt Date: 20130212
  Transmission Date: 20140127
  Serious: Yes (Other)
  Sender: FDA-Public Use
  Company Number: US-BAXTER-2012BAX018621

PATIENT
  Age: 56 None
  Sex: Female
  Weight: 72.19 kg

DRUGS (1)
  1. ARTISS [Suspect]
     Indication: FACE LIFT
     Route: 061
     Dates: start: 20120925, end: 20120925

REACTIONS (2)
  - Swelling face [Recovered/Resolved]
  - Hypersensitivity [Recovered/Resolved]
